FAERS Safety Report 4263625-2 (Version None)
Quarter: 2004Q1

REPORT INFORMATION
  Report Type: 
  Country: None (occurrence: None)
  Receive Date: 20040102
  Receipt Date: 20031218
  Transmission Date: 20041129
  Serious: Yes (Life-Threatening)
  Sender: FDA-Public Use
  Company Number: HQWYE703719JUN03

PATIENT
  Sex: Male

DRUGS (13)
  1. RAPAMUNE [Suspect]
     Indication: PROPHYLAXIS AGAINST TRANSPLANT REJECTION
     Dosage: 1 MG DOSE; DAILY FREQUENCY NOT SPECIFIED
     Route: 048
  2. HEPARIN [Suspect]
     Dosage: 5000 UNITS ONCE
  3. LOVENOX [Suspect]
     Dosage: 2X40 MG
  4. MYCOPHENOLATE MOFETIL (MYCOPHENOLATE MOFETIL, ) [Suspect]
     Indication: IMMUNOSUPPRESSANT DRUG THERAPY
     Dosage: 2 X 500 MG
  5. LASIX [Concomitant]
  6. SORTIS ^GOEDECKE^ (ATORVASTATIN CALCIUM) [Concomitant]
  7. TROMMCARDIN (MAGNESIUM HYDROGEN ASPARTATE/POTASSIUM HYDROGEN ASPARTATE [Concomitant]
  8. THYREX (LEVOTHYROXINE SODIUM) [Concomitant]
  9. UROSIN (ALLOPURINOL) [Concomitant]
  10. NEXIUM [Concomitant]
  11. CIPRALEX (ESCITALOPRAM) [Concomitant]
  12. ERYPO (EPOETIN ALFA) [Concomitant]
  13. ALNA (TAMSULOSIN HYDROCHLORIDE) [Concomitant]

REACTIONS (3)
  - DRUG INTERACTION [None]
  - MUSCLE HAEMORRHAGE [None]
  - RETROPERITONEAL HAEMORRHAGE [None]
